FAERS Safety Report 8638766 (Version 2)
Quarter: 2012Q4

REPORT INFORMATION
  Report Type: 
  Country: US (occurrence: US)
  Receive Date: 20120627
  Receipt Date: 20120927
  Transmission Date: 20130627
  Serious: Yes (Death, Other)
  Sender: FDA-Public Use
  Company Number: US-ELI_LILLY_AND_COMPANY-US201204001087

PATIENT
  Age: 70 None
  Sex: Female
  Weight: 70.3 kg

DRUGS (2)
  1. FORTEO [Suspect]
     Indication: OSTEOPOROSIS
     Dosage: 20 ug, qd
     Route: 058
  2. FORTEO [Suspect]
     Dosage: 20 ug, qd
     Route: 058

REACTIONS (14)
  - Biliary cirrhosis primary [Fatal]
  - Hepatic cirrhosis [Unknown]
  - Dementia Alzheimer^s type [Unknown]
  - Parkinson^s disease [Unknown]
  - Muscular weakness [Unknown]
  - Dementia [Unknown]
  - Bedridden [Not Recovered/Not Resolved]
  - Dysphagia [Unknown]
  - Mastication disorder [Unknown]
  - Dysstasia [Unknown]
  - Condition aggravated [Unknown]
  - Memory impairment [Unknown]
  - Posture abnormal [Unknown]
  - Feeling abnormal [Unknown]
